FAERS Safety Report 5069481-7 (Version None)
Quarter: 2006Q3

REPORT INFORMATION
  Report Type: 
  Country: None (occurrence: None)
  Receive Date: 20060803
  Receipt Date: 20041021
  Transmission Date: 20061208
  Serious: Yes (Death)
  Sender: FDA-Public Use
  Company Number: 2004UW21991

PATIENT
  Age: 45 Year
  Sex: Male
  Weight: 181.8 kg

DRUGS (4)
  1. SEROQUEL [Suspect]
     Route: 048
  2. CARDIAC MEDICATIONS [Concomitant]
     Indication: CARDIAC FAILURE CONGESTIVE
     Route: 048
  3. CEPHALEXIN [Concomitant]
     Route: 048
  4. TEN BOTTLES OF MEDICATIONS [Concomitant]

REACTIONS (10)
  - AGITATION [None]
  - BALANCE DISORDER [None]
  - CARDIOVASCULAR DISORDER [None]
  - DRUG TOXICITY [None]
  - FALL [None]
  - HALLUCINATION [None]
  - INCORRECT DOSE ADMINISTERED [None]
  - LOSS OF CONSCIOUSNESS [None]
  - MEDICATION ERROR [None]
  - RESPIRATORY ARREST [None]
